FAERS Safety Report 18681752 (Version 1)
Quarter: 2020Q4

REPORT INFORMATION
  Report Type: Spontaneous
  Country: US (occurrence: US)
  Receive Date: 20201228
  Receipt Date: 20201228
  Transmission Date: 20210114
  Serious: No
  Sender: FDA-Public Use
  Company Number: None

PATIENT
  Age: 61 Year
  Sex: Male

DRUGS (1)
  1. BACLOFEN (BACLOFEN 10MG TAB (1/2 TAB)) [Suspect]
     Active Substance: BACLOFEN
     Indication: BACK PAIN
     Route: 048
     Dates: start: 20200423, end: 20201211

REACTIONS (1)
  - Seizure [None]

NARRATIVE: CASE EVENT DATE: 20201211
